FAERS Safety Report 5604447-7 (Version None)
Quarter: 2008Q1

REPORT INFORMATION
  Report Type: 
  Country: None (occurrence: None)
  Receive Date: 20080123
  Receipt Date: 20080123
  Transmission Date: 20080703
  Serious: No
  Sender: FDA-Public Use
  Company Number: None

PATIENT
  Age: 42 Year
  Sex: Female
  Weight: 83.9154 kg

DRUGS (1)
  1. AMOXICILLIN + CLAVULANATE POTASSIUM [Suspect]
     Indication: INFECTION
     Dosage: ONE BID PO
     Route: 048
     Dates: start: 20071207, end: 20071221

REACTIONS (2)
  - ALOPECIA [None]
  - NO THERAPEUTIC RESPONSE [None]
